FAERS Safety Report 5296867-8 (Version None)
Quarter: 2007Q2

REPORT INFORMATION
  Report Type: 
  Country: None (occurrence: None)
  Receive Date: 20070413
  Receipt Date: 20070404
  Transmission Date: 20071010
  Serious: Yes (Other)
  Sender: FDA-Public Use
  Company Number: US-PFIZER INC-2007028230

PATIENT
  Sex: Male
  Weight: 70.3 kg

DRUGS (7)
  1. CHANTIX [Suspect]
     Indication: SMOKING CESSATION THERAPY
     Dates: start: 20070124, end: 20070101
  2. DIOVAN HCT [Concomitant]
  3. AVANDAMET [Concomitant]
  4. ZETIA [Concomitant]
  5. TERAZOSIN HCL [Concomitant]
  6. AMITRIPTYLINE HCL [Concomitant]
  7. VITAMIN CAP [Concomitant]

REACTIONS (3)
  - ABNORMAL DREAMS [None]
  - IRRITABILITY [None]
  - PERIPHERAL ARTERY ANGIOPLASTY [None]
